FAERS Safety Report 5133660-0 (Version None)
Quarter: 2006Q4

REPORT INFORMATION
  Report Type: 
  Country: None (occurrence: None)
  Receive Date: 20061018
  Receipt Date: 20061005
  Transmission Date: 20070319
  Serious: Yes (Other)
  Sender: FDA-Public Use
  Company Number: 2006123755

PATIENT
  Age: 66 Year
  Sex: Female
  Weight: 85 kg

DRUGS (1)
  1. SUTENT [Suspect]
     Indication: RENAL CELL CARCINOMA STAGE UNSPECIFIED
     Dosage: 50 MG (2 IN 1 D), ORAL
     Route: 048
     Dates: start: 20060927, end: 20061002

REACTIONS (3)
  - HEADACHE [None]
  - HYPERTENSION [None]
  - PALPITATIONS [None]
